FAERS Safety Report 9670950 (Version 1)
Quarter: 2013Q4

REPORT INFORMATION
  Report Type: Spontaneous
  Country: JP (occurrence: JP)
  Receive Date: 20131106
  Receipt Date: 20131106
  Transmission Date: 20140711
  Serious: Yes (Other)
  Sender: FDA-Public Use
  Company Number: JP-JNJFOC-20131019451

PATIENT
  Age: 48 Year
  Sex: Male
  Weight: 95 kg

DRUGS (22)
  1. SIMPONI [Suspect]
     Indication: RHEUMATOID ARTHRITIS
     Route: 058
     Dates: start: 20130522, end: 20130522
  2. SIMPONI [Suspect]
     Indication: RHEUMATOID ARTHRITIS
     Route: 058
     Dates: start: 20130619, end: 20130619
  3. SIMPONI [Suspect]
     Indication: RHEUMATOID ARTHRITIS
     Route: 058
     Dates: start: 20130717, end: 20130717
  4. SIMPONI [Suspect]
     Indication: RHEUMATOID ARTHRITIS
     Route: 058
     Dates: start: 20130814, end: 20130814
  5. SIMPONI [Suspect]
     Indication: RHEUMATOID ARTHRITIS
     Route: 058
     Dates: start: 20130915, end: 20130915
  6. SIMPONI [Suspect]
     Indication: RHEUMATOID ARTHRITIS
     Route: 058
     Dates: start: 20130424, end: 20130424
  7. SIMPONI [Suspect]
     Indication: RHEUMATOID ARTHRITIS
     Route: 058
     Dates: start: 20130327, end: 20130327
  8. SIMPONI [Suspect]
     Indication: RHEUMATOID ARTHRITIS
     Route: 058
     Dates: start: 20131009
  9. PROGRAF [Suspect]
     Indication: RHEUMATOID ARTHRITIS
     Route: 048
     Dates: start: 20130405, end: 20130412
  10. PROGRAF [Suspect]
     Indication: RHEUMATOID ARTHRITIS
     Route: 048
     Dates: start: 20130329, end: 20130404
  11. PROGRAF [Suspect]
     Indication: RHEUMATOID ARTHRITIS
     Route: 048
     Dates: start: 20130413, end: 20130503
  12. PROGRAF [Suspect]
     Indication: RHEUMATOID ARTHRITIS
     Route: 048
     Dates: start: 20130504
  13. PREDNISOLONE [Suspect]
     Indication: RHEUMATOID ARTHRITIS
     Route: 048
  14. REMICADE [Concomitant]
     Route: 042
  15. ENBREL [Concomitant]
     Route: 065
  16. CELECOX [Concomitant]
     Route: 048
  17. NU-LOTAN [Concomitant]
     Route: 048
  18. ADALAT CR [Concomitant]
     Route: 048
  19. LASIX [Concomitant]
     Route: 048
  20. BAKTAR [Concomitant]
     Route: 048
  21. PARIET [Concomitant]
     Route: 048
  22. JANUVIA [Concomitant]
     Route: 048

REACTIONS (1)
  - Otitis media chronic [Recovering/Resolving]
